FAERS Safety Report 6488985-3 (Version None)
Quarter: 2009Q4

REPORT INFORMATION
  Report Type: 
  Country: None (occurrence: None)
  Receive Date: 20091210
  Receipt Date: 20091203
  Transmission Date: 20100525
  Serious: Yes (Other)
  Sender: FDA-Public Use
  Company Number: US-WYE-H11081409

PATIENT
  Sex: Male
  Weight: 15.7 kg

DRUGS (3)
  1. XYNTHA [Suspect]
     Indication: FACTOR VIII DEFICIENCY
     Dosage: 250 UNITS, INITIALLY GIVEN ON DEMAND THEN CHANGED TO PROPHYLACTIC
     Route: 042
     Dates: start: 20081120, end: 20090226
  2. XYNTHA [Suspect]
     Dosage: 500 UNIT EVERY 1 DAY
     Route: 042
     Dates: start: 20090227, end: 20090227
  3. XYNTHA [Suspect]
     Dosage: 250 UNITS PROPHYLACTIC
     Route: 042
     Dates: start: 20090228, end: 20090501

REACTIONS (4)
  - FACTOR VIII INHIBITION [None]
  - FLUSHING [None]
  - PYREXIA [None]
  - SOMNOLENCE [None]
